FAERS Safety Report 4297161-4 (Version None)
Quarter: 2004Q1

REPORT INFORMATION
  Report Type: 
  Country: None (occurrence: None)
  Receive Date: 20040217
  Receipt Date: 20040217
  Transmission Date: 20041129
  Serious: No
  Sender: FDA-Public Use
  Company Number: None

PATIENT
  Sex: Male

DRUGS (4)
  1. METFORMIN HCL [Suspect]
     Indication: DIABETES MELLITUS
     Dosage: TAKE 3 TABS DAILY
     Dates: start: 20031029
  2. METFORMIN HCL [Suspect]
     Indication: DIABETES MELLITUS
     Dosage: TAKE 3 TABS DAILY
     Dates: start: 20040115
  3. HUMULIN 70/30 [Concomitant]
  4. LISINOPRIL [Concomitant]

REACTIONS (2)
  - LABORATORY TEST ABNORMAL [None]
  - PHARMACEUTICAL PRODUCT COMPLAINT [None]
